FAERS Safety Report 10221390 (Version 1)
Quarter: 2014Q2

REPORT INFORMATION
  Report Type: Report from Study
  Country: US (occurrence: US)
  Receive Date: 20140606
  Receipt Date: 20140606
  Transmission Date: 20141212
  Serious: Yes (Other)
  Sender: FDA-Public Use
  Company Number: US-ACTELION-A-US2014-099989

PATIENT
  Age: 63 Year
  Sex: Female

DRUGS (2)
  1. VENTAVIS [Suspect]
     Indication: PULMONARY ARTERIAL HYPERTENSION
     Dosage: 5 MCG 6-9XD
     Route: 055
     Dates: start: 20120724
  2. REVATIO [Concomitant]
     Dosage: 5 UNK, UNK

REACTIONS (1)
  - Cholecystectomy [Unknown]
